FAERS Safety Report 11469418 (Version 1)
Quarter: 2015Q3

REPORT INFORMATION
  Report Type: Spontaneous
  Country: CO (occurrence: CO)
  Receive Date: 20150908
  Receipt Date: 20150908
  Transmission Date: 20151125
  Serious: Yes (Hospitalization)
  Sender: FDA-Public Use
  Company Number: CO-ABBVIE-15P-036-1459283-00

PATIENT
  Age: 3 Month
  Sex: Female

DRUGS (1)
  1. SYNAGIS [Suspect]
     Active Substance: PALIVIZUMAB
     Indication: ANTIVIRAL PROPHYLAXIS
     Route: 050
     Dates: start: 20150717

REACTIONS (1)
  - Respiratory syncytial virus bronchiolitis [Not Recovered/Not Resolved]

NARRATIVE: CASE EVENT DATE: 20150902
